FAERS Safety Report 6075161-1 (Version None)
Quarter: 2009Q1

REPORT INFORMATION
  Report Type: 
  Country: None (occurrence: None)
  Receive Date: 20090210
  Receipt Date: 20090210
  Transmission Date: 20090719
  Serious: Yes (Hospitalization)
  Sender: FDA-Public Use
  Company Number: None

PATIENT
  Age: 56 Year
  Sex: Female
  Weight: 83.01 kg

DRUGS (1)
  1. RITUXIMAB [Suspect]
     Dosage: 25 MG SQ
     Route: 058
     Dates: start: 20081211, end: 20081211

REACTIONS (1)
  - ANAPHYLACTIC REACTION [None]
